FAERS Safety Report 8060484-7 (Version None)
Quarter: 2012Q1

REPORT INFORMATION
  Report Type: 
  Country: None (occurrence: None)
  Receive Date: 20120120
  Receipt Date: 20120116
  Transmission Date: 20120608
  Serious: Yes (Death, Hospitalization)
  Sender: FDA-Public Use
  Company Number: GW-ABBOTT-12P-071-0894301-00

PATIENT
  Sex: Male
  Weight: 45 kg

DRUGS (6)
  1. AZT + 3TC [Concomitant]
     Indication: HIV INFECTION
     Dates: start: 20110930
  2. COTRIM [Concomitant]
     Indication: PROPHYLAXIS
     Route: 048
     Dates: start: 20110802
  3. ZIDOVUDINE [Concomitant]
     Indication: HIV INFECTION
     Route: 048
     Dates: start: 20110930
  4. LAMIVUDINE [Concomitant]
     Indication: HIV INFECTION
     Route: 048
     Dates: start: 20110930
  5. ISONIAZID [Concomitant]
     Indication: PROPHYLAXIS
     Route: 048
     Dates: start: 20110902
  6. KALETRA [Suspect]
     Indication: HIV INFECTION
     Dosage: 200MG/5MG
     Route: 048
     Dates: start: 20110805

REACTIONS (3)
  - PYREXIA [None]
  - DEATH [None]
  - DIARRHOEA [None]
